FAERS Safety Report 5158440-1 (Version None)
Quarter: 2006Q4

REPORT INFORMATION
  Report Type: 
  Country: None (occurrence: None)
  Receive Date: 20061128
  Receipt Date: 20061114
  Transmission Date: 20070319
  Serious: Yes (Other)
  Sender: FDA-Public Use
  Company Number: PHBS2006HN17767

PATIENT
  Age: 37 Year
  Sex: Male

DRUGS (2)
  1. AMIKIN [Concomitant]
  2. ZELMAC [Suspect]
     Indication: CONSTIPATION
     Dosage: 6 MG, ONCE/SINGLE
     Route: 048
     Dates: start: 20061113, end: 20061113

REACTIONS (1)
  - DIARRHOEA [None]
